FAERS Safety Report 20258570 (Version 1)
Quarter: 2021Q4

REPORT INFORMATION
  Report Type: Spontaneous
  Country: SE (occurrence: SE)
  Receive Date: 20211230
  Receipt Date: 20211230
  Transmission Date: 20220303
  Serious: Yes (Other)
  Sender: FDA-Public Use
  Company Number: SE-ABBVIE-21K-150-4217291-00

PATIENT
  Sex: Male

DRUGS (1)
  1. VALPROIC ACID [Suspect]
     Active Substance: VALPROIC ACID
     Indication: Headache
     Route: 065
     Dates: start: 20180102, end: 20180102

REACTIONS (4)
  - Neuropathy peripheral [Unknown]
  - Coordination abnormal [Unknown]
  - Product use issue [Unknown]
  - Tremor [Unknown]
